FAERS Safety Report 7861290-6 (Version None)
Quarter: 2011Q4

REPORT INFORMATION
  Report Type: 
  Country: None (occurrence: None)
  Receive Date: 20111027
  Receipt Date: 20111020
  Transmission Date: 20120403
  Serious: Yes (Hospitalization)
  Sender: FDA-Public Use
  Company Number: AU-JNJFOC-20111002141

PATIENT
  Sex: Female

DRUGS (11)
  1. STELARA [Suspect]
     Route: 058
     Dates: start: 20110926
  2. VALIUM [Concomitant]
  3. NEURONTIN [Concomitant]
  4. MOBIC [Concomitant]
  5. ASPIRIN [Concomitant]
  6. STELARA [Suspect]
     Indication: PSORIASIS
     Route: 058
     Dates: start: 20110804
  7. ENDEP [Concomitant]
  8. ACETAMINOPHEN W/ CODEINE [Concomitant]
     Dosage: UP TO 8 PER DAY
  9. MINAX [Concomitant]
  10. OXYCODONE HCL [Concomitant]
  11. KARVEA [Concomitant]

REACTIONS (2)
  - NEURALGIA [None]
  - DRUG DOSE OMISSION [None]
